FAERS Safety Report 14181759 (Version 1)
Quarter: 2017Q4

REPORT INFORMATION
  Report Type: Spontaneous
  Country: US (occurrence: US)
  Receive Date: 20171113
  Receipt Date: 20171113
  Transmission Date: 20180321
  Serious: Yes (Other)
  Sender: FDA-Public Use
  Company Number: US-TEVA-824511ACC

PATIENT
  Sex: Female

DRUGS (1)
  1. PARAGARD T 380A [Suspect]
     Active Substance: COPPER
     Dates: end: 20170915

REACTIONS (3)
  - Device breakage [Not Recovered/Not Resolved]
  - Device dislocation [Not Recovered/Not Resolved]
  - Embedded device [Not Recovered/Not Resolved]
